FAERS Safety Report 12055753 (Version 1)
Quarter: 2016Q1

REPORT INFORMATION
  Report Type: Spontaneous
  Country: US (occurrence: US)
  Receive Date: 20160209
  Receipt Date: 20160209
  Transmission Date: 20160526
  Serious: Yes (Other)
  Sender: FDA-Public Use
  Company Number: US-WATSON-2016-01703

PATIENT

DRUGS (2)
  1. TESTIM [Suspect]
     Active Substance: TESTOSTERONE
     Indication: ANDROGEN REPLACEMENT THERAPY
     Dosage: UNKNOWN
     Route: 065
     Dates: start: 20130508, end: 20131216
  2. ANDRODERM [Suspect]
     Active Substance: TESTOSTERONE
     Indication: ANDROGEN REPLACEMENT THERAPY
     Dosage: UNKNOWN
     Route: 065
     Dates: start: 20130508, end: 20131216

REACTIONS (3)
  - Peripheral artery occlusion [Unknown]
  - Ischaemia [Unknown]
  - Subclavian artery occlusion [Unknown]

NARRATIVE: CASE EVENT DATE: 20140121
